FAERS Safety Report 4837577-8 (Version None)
Quarter: 2005Q4

REPORT INFORMATION
  Report Type: 
  Country: None (occurrence: None)
  Receive Date: 20051122
  Receipt Date: 20051101
  Transmission Date: 20060501
  Serious: Yes (Other)
  Sender: FDA-Public Use
  Company Number: 2005BH002703

PATIENT
  Age: 76 Year
  Sex: Male

DRUGS (4)
  1. STERILE WATER [Suspect]
     Indication: SURGERY
  2. EPINEPHRINE [Concomitant]
  3. TEQUIN [Concomitant]
  4. KENALOG [Concomitant]

REACTIONS (1)
  - EYE INFECTION [None]
